FAERS Safety Report 8509701-7 (Version None)
Quarter: 2012Q3

REPORT INFORMATION
  Report Type: 
  Country: None (occurrence: None)
  Receive Date: 20120713
  Receipt Date: 20120710
  Transmission Date: 20120928
  Serious: Yes (Other)
  Sender: FDA-Public Use
  Company Number: US-TEVA-347948USA

PATIENT
  Sex: Female
  Weight: 53.572 kg

DRUGS (3)
  1. TRICOR [Concomitant]
     Indication: BLOOD CHOLESTEROL INCREASED
     Route: 048
  2. COPAXONE [Suspect]
     Indication: MULTIPLE SCLEROSIS
     Dosage: 20 MILLIGRAM;
     Route: 058
     Dates: start: 20101105
  3. DILTIAZEM [Concomitant]
     Indication: RAYNAUD'S PHENOMENON
     Route: 048

REACTIONS (2)
  - THYROID CANCER [None]
  - BREAST CANCER [None]
